FAERS Safety Report 7003204-7 (Version None)
Quarter: 2010Q3

REPORT INFORMATION
  Report Type: 
  Country: None (occurrence: None)
  Receive Date: 20100920
  Receipt Date: 20100305
  Transmission Date: 20110219
  Serious: Yes (Hospitalization)
  Sender: FDA-Public Use
  Company Number: US-ASTRAZENECA-2010SE09810

PATIENT
  Sex: Male
  Weight: 79.4 kg

DRUGS (8)
  1. SEROQUEL XR [Suspect]
     Indication: BIPOLAR DISORDER
     Route: 048
     Dates: start: 20100217, end: 20100220
  2. SEROQUEL XR [Suspect]
     Route: 048
     Dates: start: 20100221, end: 20100224
  3. SEROQUEL XR [Suspect]
     Route: 048
     Dates: start: 20100225
  4. PAXIL [Concomitant]
  5. BENZTROPINE MESYLATE [Concomitant]
     Indication: TREMOR
     Dates: end: 20100303
  6. BENZTROPINE MESYLATE [Concomitant]
     Indication: MUSCLE SPASMS
     Dates: end: 20100303
  7. VALIUM [Concomitant]
     Indication: TREMOR
  8. VALIUM [Concomitant]
     Indication: MUSCLE SPASMS

REACTIONS (3)
  - MUSCLE SPASMS [None]
  - TREMOR [None]
  - VISION BLURRED [None]
